FAERS Safety Report 7970670-X (Version None)
Quarter: 2011Q4

REPORT INFORMATION
  Report Type: 
  Country: None (occurrence: None)
  Receive Date: 20111212
  Receipt Date: 20111202
  Transmission Date: 20120403
  Serious: Yes (Hospitalization)
  Sender: FDA-Public Use
  Company Number: PHHY2011ES107699

PATIENT
  Age: 52 Year
  Sex: Female

DRUGS (6)
  1. TORSEMIDE [Concomitant]
     Dosage: 5 MG, PER DAY
  2. BUDESONIDE [Concomitant]
     Dosage: UNK UKN, UNK
  3. IMIPRAMINE [Suspect]
     Dosage: 150 MG, PER DAY
  4. LEVOTHYROXINE SODIUM [Concomitant]
     Dosage: 50 UG, PER DAY
  5. CLORAZEPATE DIPOTASSIUM [Concomitant]
     Dosage: 12.5 MG, PER DAY
  6. ALBUTEROL SULFATE AUTOHALER [Concomitant]
     Dosage: UNK UKN, UNK

REACTIONS (9)
  - CARDIOMEGALY [None]
  - PYREXIA [None]
  - PLEUROPERICARDITIS [None]
  - PERICARDIAL EFFUSION [None]
  - PLEURITIC PAIN [None]
  - SINUS TACHYCARDIA [None]
  - DYSPNOEA [None]
  - EOSINOPHILIA [None]
  - PLEURAL EFFUSION [None]
